FAERS Safety Report 13643100 (Version 3)
Quarter: 2017Q4

REPORT INFORMATION
  Report Type: Report from Study
  Country: CA (occurrence: CA)
  Receive Date: 20170612
  Receipt Date: 20171107
  Transmission Date: 20180320
  Serious: Yes (Other)
  Sender: FDA-Public Use
  Company Number: CA-BRISTOL-MYERS SQUIBB COMPANY-BMS-2017-051284

PATIENT
  Sex: Female

DRUGS (1)
  1. ABATACEPT [Suspect]
     Active Substance: ABATACEPT
     Indication: RHEUMATOID ARTHRITIS
     Dosage: 750 MG,3VIALS,QMO
     Route: 042
     Dates: start: 20110817

REACTIONS (3)
  - Nephrolithiasis [Not Recovered/Not Resolved]
  - Blood pressure increased [Unknown]
  - Jaw disorder [Unknown]
